FAERS Safety Report 8573049-5 (Version None)
Quarter: 2012Q2

REPORT INFORMATION
  Report Type: 
  Country: None (occurrence: None)
  Receive Date: 20120418
  Receipt Date: 20101213
  Transmission Date: 20120825
  Serious: Yes (Other)
  Sender: FDA-Public Use
  Company Number: PHHY2010US85316

PATIENT
  Sex: Male

DRUGS (1)
  1. DIOVAN HCT [Suspect]

REACTIONS (2)
  - RASH [None]
  - PRURITUS [None]
